FAERS Safety Report 8614308 (Version 2)
Quarter: 2012Q4

REPORT INFORMATION
  Report Type: 
  Country: US (occurrence: US)
  Receive Date: 20120614
  Receipt Date: 20121120
  Transmission Date: 20130627
  Serious: No
  Sender: FDA-Public Use
  Company Number: US-ASTRAZENECA-2012SE35224

PATIENT
  Age: 54 Year
  Sex: Male
  Weight: 69.9 kg

DRUGS (2)
  1. NEXIUM [Suspect]
     Route: 048
     Dates: start: 20111028
  2. FAMOTIDINE [Concomitant]
     Dates: start: 20111028

REACTIONS (3)
  - Osteoporosis [Unknown]
  - Multiple fractures [Unknown]
  - Drug hypersensitivity [Unknown]
